FAERS Safety Report 13880128 (Version 3)
Quarter: 2017Q3

REPORT INFORMATION
  Report Type: Spontaneous
  Country: US (occurrence: US)
  Receive Date: 20170818
  Receipt Date: 20170906
  Transmission Date: 20171127
  Serious: No
  Sender: FDA-Public Use
  Company Number: US-GLAXOSMITHKLINE-US2017127577

PATIENT
  Age: 77 Year
  Sex: Female

DRUGS (8)
  1. FLECAINIDE [Concomitant]
     Active Substance: FLECAINIDE
  2. GLIPERIDE [Concomitant]
     Active Substance: GLIMEPIRIDE
  3. PRADAXA [Concomitant]
     Active Substance: DABIGATRAN ETEXILATE MESYLATE
  4. BREO ELLIPTA [Suspect]
     Active Substance: FLUTICASONE FUROATE\VILANTEROL TRIFENATATE
     Indication: ASTHMA
     Dosage: 1 PUFF(S), QD
     Route: 055
     Dates: start: 20170814, end: 20170815
  5. LISINOPRIL. [Concomitant]
     Active Substance: LISINOPRIL
  6. DILTIAZEM. [Concomitant]
     Active Substance: DILTIAZEM
  7. OMEPRAZOLE. [Concomitant]
     Active Substance: OMEPRAZOLE
  8. METFORMIN [Concomitant]
     Active Substance: METFORMIN HYDROCHLORIDE

REACTIONS (1)
  - Cough [Not Recovered/Not Resolved]

NARRATIVE: CASE EVENT DATE: 20170814
